FAERS Safety Report 9492578 (Version 2)
Quarter: 2013Q3

REPORT INFORMATION
  Report Type: Spontaneous
  Country: US (occurrence: US)
  Receive Date: 20130830
  Receipt Date: 20130830
  Transmission Date: 20140515
  Serious: No
  Sender: FDA-Public Use
  Company Number: US-BAXTER-2013BAX032830

PATIENT
  Sex: 0

DRUGS (2)
  1. 0.9% SODIUM CHLORIDE INJECTION [Suspect]
     Indication: THERAPEUTIC PROCEDURE
  2. 0.9% SODIUM CHLORIDE INJECTION [Suspect]
     Indication: OFF LABEL USE

REACTIONS (2)
  - Product contamination physical [Unknown]
  - Intercepted medication error [Recovered/Resolved]
